FAERS Safety Report 5520122-1 (Version None)
Quarter: 2007Q4

REPORT INFORMATION
  Report Type: 
  Country: None (occurrence: None)
  Receive Date: 20071116
  Receipt Date: 20071102
  Transmission Date: 20080405
  Serious: Yes (Other)
  Sender: FDA-Public Use
  Company Number: US-SHR-US-2007-041787

PATIENT
  Age: 26 Year
  Sex: Male

DRUGS (3)
  1. BETASERON [Suspect]
     Route: 058
     Dates: start: 20061020, end: 20070501
  2. BETASERON [Suspect]
     Dosage: 8 MIU, EVERY 2D
     Route: 058
     Dates: start: 20071015
  3. REBIF [Suspect]

REACTIONS (2)
  - BLOOD PRESSURE DECREASED [None]
  - PALPITATIONS [None]
